FAERS Safety Report 13050955 (Version 1)
Quarter: 2016Q4

REPORT INFORMATION
  Report Type: Spontaneous
  Country: US (occurrence: US)
  Receive Date: 20161221
  Receipt Date: 20161221
  Transmission Date: 20170207
  Serious: Yes (Other)
  Sender: FDA-Public Use
  Company Number: US-NOVOPROD-491483

PATIENT
  Age: 63 Year
  Sex: Female
  Weight: 88.4 kg

DRUGS (7)
  1. LEVEMIR [Suspect]
     Active Substance: INSULIN DETEMIR
     Indication: TYPE 2 DIABETES MELLITUS
     Dosage: 15 U, QD
     Route: 058
     Dates: start: 20160205, end: 201602
  2. LEVEMIR [Suspect]
     Active Substance: INSULIN DETEMIR
     Dosage: 28 U, QD FOR ONE WEEK
     Route: 058
     Dates: start: 201602, end: 201602
  3. LEVEMIR [Suspect]
     Active Substance: INSULIN DETEMIR
     Dosage: 40 U, QD FOR 3 DAYS
     Route: 058
     Dates: start: 201602, end: 201602
  4. LEVEMIR [Suspect]
     Active Substance: INSULIN DETEMIR
     Dosage: 18 U, QD
     Route: 058
     Dates: start: 201603
  5. METFORMIN [Concomitant]
     Active Substance: METFORMIN HYDROCHLORIDE
     Indication: TYPE 2 DIABETES MELLITUS
  6. LEVEMIR [Suspect]
     Active Substance: INSULIN DETEMIR
     Dosage: 18 U, QD
     Route: 058
     Dates: start: 201602, end: 201602
  7. LOSARTAN. [Concomitant]
     Active Substance: LOSARTAN
     Indication: PRODUCT USED FOR UNKNOWN INDICATION
     Dosage: 40 MG

REACTIONS (15)
  - Hypertension [Not Recovered/Not Resolved]
  - Somnolence [Not Recovered/Not Resolved]
  - Headache [Unknown]
  - Blood glucose increased [Not Recovered/Not Resolved]
  - Gastritis [Not Recovered/Not Resolved]
  - Hyperglycaemic unconsciousness [Recovered/Resolved]
  - Dry mouth [Not Recovered/Not Resolved]
  - Dyspnoea [Not Recovered/Not Resolved]
  - Throat tightness [Unknown]
  - Palpitations [Unknown]
  - Tachycardia [Not Recovered/Not Resolved]
  - Abdominal pain upper [Unknown]
  - Pain [Not Recovered/Not Resolved]
  - Nausea [Not Recovered/Not Resolved]
  - Vomiting [Not Recovered/Not Resolved]

NARRATIVE: CASE EVENT DATE: 201602
